FAERS Safety Report 12298755 (Version 4)
Quarter: 2017Q2

REPORT INFORMATION
  Report Type: Report from Study
  Country: US (occurrence: US)
  Receive Date: 20160425
  Receipt Date: 20170530
  Transmission Date: 20170830
  Serious: No
  Sender: FDA-Public Use
  Company Number: US-AMGEN-USASL2016049248

PATIENT
  Age: 57 Year
  Sex: Female

DRUGS (1)
  1. ENBREL [Suspect]
     Active Substance: ETANERCEPT
     Indication: PSORIATIC ARTHROPATHY
     Dosage: UNK UNK, QWK
     Route: 065
     Dates: start: 20160224, end: 201603

REACTIONS (18)
  - Injection site discolouration [Unknown]
  - Injection site hypersensitivity [Unknown]
  - Ear pain [Unknown]
  - Injection site reaction [Unknown]
  - Arthropathy [Unknown]
  - Headache [Unknown]
  - Palpitations [Not Recovered/Not Resolved]
  - Fatigue [Unknown]
  - Injection site bruising [Unknown]
  - Abscess [Recovered/Resolved]
  - Urticaria [Unknown]
  - Injection site warmth [Unknown]
  - Injection site urticaria [Unknown]
  - Hypersensitivity [Unknown]
  - Influenza like illness [Unknown]
  - Feeling abnormal [Unknown]
  - Musculoskeletal discomfort [Unknown]
  - Mobility decreased [Unknown]

NARRATIVE: CASE EVENT DATE: 2016
